FAERS Safety Report 6970504-6 (Version None)
Quarter: 2010Q3

REPORT INFORMATION
  Report Type: 
  Country: None (occurrence: None)
  Receive Date: 20100903
  Receipt Date: 20100820
  Transmission Date: 20110219
  Serious: Yes (Other)
  Sender: FDA-Public Use
  Company Number: 2010AP001799

PATIENT
  Age: 63 Year
  Sex: Female

DRUGS (3)
  1. ALENDRONATE SODIUM [Suspect]
     Indication: OSTEOPOROSIS PROPHYLAXIS
  2. PREDNISOLONE [Concomitant]
  3. VITAMIN D [Concomitant]

REACTIONS (4)
  - EXOSTOSIS [None]
  - FEMUR FRACTURE [None]
  - FRACTURE DELAYED UNION [None]
  - STRESS FRACTURE [None]
